FAERS Safety Report 16047092 (Version 1)
Quarter: 2019Q1

REPORT INFORMATION
  Report Type: Report from Study
  Country: US (occurrence: US)
  Receive Date: 20190307
  Receipt Date: 20190307
  Transmission Date: 20190418
  Serious: Yes (Hospitalization)
  Sender: FDA-Public Use
  Company Number: US-BAXTER-2019BAX004414

PATIENT
  Age: 40 Year
  Sex: Male

DRUGS (28)
  1. INOTUZUMAB OZOGAMICIN [Suspect]
     Active Substance: INOTUZUMAB OZOGAMICIN
     Dosage: REGIMEN B: CYCLE 2: 0.3 MG/M2 IV ON DAY 2 OR 3 (CYCLES 2 AND 4 ONLY)
     Route: 042
  2. METHOTREXATE SODIUM. [Suspect]
     Active Substance: METHOTREXATE SODIUM
     Indication: PRODUCT USED FOR UNKNOWN INDICATION
     Dosage: REGIMEN B: CYCLE 2: 50 MG/M2 IV OVER 2HRS ON DAY 1
     Route: 042
  3. METHOTREXATE SODIUM. [Suspect]
     Active Substance: METHOTREXATE SODIUM
     Dosage: REGIMEN B: CYCLE 4: 50 MG/M2 IV OVER 2HRS ON DAY 1
     Route: 042
  4. PEG-FILGRASTIM [Suspect]
     Active Substance: PEGFILGRASTIM
     Dosage: REGIMEN B: CYCLE 2: 6 MG SUBQ (OR FILGRASTIM 5-10 MCG/KG DAILY).
     Route: 058
  5. PEG-FILGRASTIM [Suspect]
     Active Substance: PEGFILGRASTIM
     Dosage: REGIMEN B: CYCLE 4: 6 MG SUBQ (OR FILGRASTIM 5-10 MCG/KG DAILY).
     Route: 058
  6. BLINATUMOMAB [Suspect]
     Active Substance: BLINATUMOMAB
     Indication: PRODUCT USED FOR UNKNOWN INDICATION
     Dosage: REGIMEN C: CYCLE 5: 9 UG/DAY CONTINUOUS INFUSION ON DAYS 1-4 (CYCLE 5 ONLY)
     Route: 042
  7. BLINATUMOMAB [Suspect]
     Active Substance: BLINATUMOMAB
     Dosage: REGIMEN C: CYCLE 5: 28 UG/DAY CONTINUOUS INFUSION ON DAYS 4-29 (CYCLE 5 ONLY)
     Route: 042
  8. PEG-FILGRASTIM [Suspect]
     Active Substance: PEGFILGRASTIM
     Dosage: REGIMEN A: CYCLE 3: 6 MG SUBQ (OR FILGRASTIM 5-10 MCG/KG DAILY) ON DAY 4 UNTIL RECOVERY OF GRANULOCY
     Route: 058
  9. MESNEX [Suspect]
     Active Substance: MESNA
     Indication: PRODUCT USED FOR UNKNOWN INDICATION
     Dosage: REGIMEN A: CYCLE 1: 300MG/M2 IV DAILY OVER 24 HOURS FOR 3 DAYS ON DAYS 1-3
     Route: 042
  10. METHOTREXATE SODIUM. [Suspect]
     Active Substance: METHOTREXATE SODIUM
     Dosage: REGIMEN B: CYCLE 2: 200 MG/M2 CONTINUOUS INFUSION OVER 22 HOURS ON DAY 1
     Route: 042
  11. PEG-FILGRASTIM [Suspect]
     Active Substance: PEGFILGRASTIM
     Indication: PRODUCT USED FOR UNKNOWN INDICATION
     Dosage: REGIMEN A: CYCLE 1: 6 MG SUBQ (OR FILGRASTIM 5-10 MCG/KG DAILY) ON DAY 4 UNTIL RECOVERY OF GRANULOCY
     Route: 058
  12. MESNEX [Suspect]
     Active Substance: MESNA
     Dosage: REGIMEN A: CYCLE 3: 300MG/M2 IV DAILY OVER 24 HOURS FOR 3 DAYS ON DAYS 1-3
     Route: 042
  13. METHOTREXATE SODIUM. [Suspect]
     Active Substance: METHOTREXATE SODIUM
     Dosage: REGIMEN B: CYCLE 4: 200 MG/M2 CONTINUOUS INFUSION OVER 22 HOURS ON DAY 1
     Route: 042
  14. INOTUZUMAB OZOGAMICIN [Suspect]
     Active Substance: INOTUZUMAB OZOGAMICIN
     Indication: ACUTE LYMPHOCYTIC LEUKAEMIA
     Dosage: REGIMEN A: CYCLE 1: 0.3 MG/M2 IV OVER 1 HOUR ON DAY 3
     Route: 042
     Dates: start: 20181006
  15. DEXAMETHASONE. [Suspect]
     Active Substance: DEXAMETHASONE
     Indication: PRODUCT USED FOR UNKNOWN INDICATION
     Dosage: REGIMEN A: CYCLE 1: 20 MG IV DAILY FOR 4 DAYS ON DAYS 1-4 AND DAYS 11-14
     Route: 042
  16. RITUXIMAB. [Suspect]
     Active Substance: RITUXIMAB
     Indication: PRODUCT USED FOR UNKNOWN INDICATION
     Dosage: REGIMEN A: CYCLE 1: 375 MG/M2 IV ON DAY 2 AND DAY 8 (CYCLES 1 AND 3 ONLY)
     Route: 042
  17. RITUXIMAB. [Suspect]
     Active Substance: RITUXIMAB
     Dosage: REGIMEN A: CYCLE 3: 375 MG/M2 IV ON DAY 2 AND DAY 8 (CYCLES 1 AND 3 ONLY)
     Route: 042
  18. INOTUZUMAB OZOGAMICIN [Suspect]
     Active Substance: INOTUZUMAB OZOGAMICIN
     Dosage: REGIMEN A: CYCLE 3: 0.3 MG/M2 IV OVER 1 HOUR ON DAY 3
     Route: 042
  19. ARA-C [Suspect]
     Active Substance: CYTARABINE
     Dosage: REGIMEN B: CYCLE 4: 0.5 G/M2 IV OVER 3 HOURS TWICE A DAY X 4 DOSES ON DAYS 2 AND 3
     Route: 042
  20. RITUXIMAB. [Suspect]
     Active Substance: RITUXIMAB
     Dosage: REGIMEN B: CYCLE 2: 375 MG/M2 IV ON DAY 2 AND 8 OF CYCLES 2 AND 4
     Route: 042
  21. CYCLOPHOSPHAMIDE FOR INJECTION, USP [Suspect]
     Active Substance: CYCLOPHOSPHAMIDE
     Indication: PRODUCT USED FOR UNKNOWN INDICATION
     Dosage: REGIMEN A: CYCLE 1: 150 MG/M2 IV OVER 3 HOURS TWICE A DAY ON DAYS 1-3;
     Route: 042
  22. CYCLOPHOSPHAMIDE FOR INJECTION, USP [Suspect]
     Active Substance: CYCLOPHOSPHAMIDE
     Dosage: REGIMEN A: CYCLE 3: 150 MG/M2 IV OVER 3 HOURS TWICE A DAY ON DAYS 1-3
     Route: 042
  23. INOTUZUMAB OZOGAMICIN [Suspect]
     Active Substance: INOTUZUMAB OZOGAMICIN
     Dosage: REGIMEN B: CYCLE 4: 0.3 MG/M2 IV ON DAY 2 OR 3 (CYCLES 2 AND 4 ONLY)
     Route: 042
  24. VINCRISTINE SULFATE. [Suspect]
     Active Substance: VINCRISTINE SULFATE
     Indication: PRODUCT USED FOR UNKNOWN INDICATION
     Dosage: REGIMEN A: CYCLE 1: 2MG IV DAY 1 AND DAY 8
     Route: 042
  25. VINCRISTINE SULFATE. [Suspect]
     Active Substance: VINCRISTINE SULFATE
     Dosage: REGIMEN A: CYCLE 3: 2MG IV DAY 1 AND DAY 8
     Route: 042
  26. ARA-C [Suspect]
     Active Substance: CYTARABINE
     Indication: PRODUCT USED FOR UNKNOWN INDICATION
     Dosage: REGIMEN B: CYCLE 2: 0.5 G/M2 IV OVER 3 HOURS TWICE A DAY X 4 DOSES ON DAYS 2 AND 3
     Route: 042
  27. DEXAMETHASONE. [Suspect]
     Active Substance: DEXAMETHASONE
     Dosage: REGIMEN A: CYCLE 3: 20 MG IV DAILY FOR 4 DAYS ON DAYS 1-4 AND DAYS 11-14
     Route: 042
  28. RITUXIMAB. [Suspect]
     Active Substance: RITUXIMAB
     Dosage: REGIMEN B: CYCLE 4: 375 MG/M2 IV ON DAY 2 AND 8 OF CYCLES 2 AND 4
     Route: 042

REACTIONS (1)
  - Pancreatitis [Recovered/Resolved]

NARRATIVE: CASE EVENT DATE: 20190113
